FAERS Safety Report 8411705-X (Version None)
Quarter: 2012Q2

REPORT INFORMATION
  Report Type: 
  Country: None (occurrence: None)
  Receive Date: 20120605
  Receipt Date: 20120514
  Transmission Date: 20120825
  Serious: No
  Sender: FDA-Public Use
  Company Number: US-AMGEN-USASP2012030022

PATIENT
  Age: 41 Year
  Sex: Female

DRUGS (2)
  1. ENBREL [Suspect]
     Indication: PSORIASIS
     Dosage: 50 MG, QWK
     Dates: start: 20120401
  2. TRIAMTERENE AND HYDROCHLOROTHIAZIDE [Concomitant]

REACTIONS (2)
  - OEDEMA PERIPHERAL [None]
  - SINUS CONGESTION [None]
